FAERS Safety Report 13879546 (Version 3)
Quarter: 2017Q3

REPORT INFORMATION
  Report Type: Report from Study
  Country: None (occurrence: JP)
  Receive Date: 20170817
  Receipt Date: 20170927
  Transmission Date: 20171127
  Serious: Yes (Hospitalization, Other)
  Sender: FDA-Public Use
  Company Number: JP-ABBVIE-17P-087-1886104-00

PATIENT
  Age: 68 Year
  Sex: Male

DRUGS (7)
  1. DUODOPA [Suspect]
     Active Substance: CARBIDOPA\LEVODOPA
     Dosage: MD: 3 ML, CD: 1.8 ML/HR X 16 HR, ED: 1.9 ML/UNIT X 4
     Route: 050
     Dates: start: 20170222
  2. DUODOPA [Suspect]
     Active Substance: CARBIDOPA\LEVODOPA
     Indication: PARKINSON^S DISEASE
     Route: 050
     Dates: start: 20170214, end: 20170214
  3. DUODOPA [Suspect]
     Active Substance: CARBIDOPA\LEVODOPA
     Dosage: MD: 3 ML, CD: 1.8 ML/HR X 16 HR, ED: 1.8 ML/UNIT X 2
     Route: 050
     Dates: start: 20170215, end: 20170219
  4. ROTIGOTINE [Concomitant]
     Active Substance: ROTIGOTINE
     Indication: PRODUCT USED FOR UNKNOWN INDICATION
     Dosage: DURING SLEEP (NOT DAYTIME)
     Route: 062
  5. DUODOPA [Suspect]
     Active Substance: CARBIDOPA\LEVODOPA
     Dosage: MCD: 1.8 ML/H,  INCREASED 1.9 ML/H BEFORE NOON, INCREASED 2.0 ML/H BEFORE SUPPER
     Route: 050
     Dates: start: 201702, end: 201702
  6. CARBIDOPA MONOHYDRATE W/LEVODOPA [Concomitant]
     Indication: PRODUCT USED FOR UNKNOWN INDICATION
     Dosage: 25-50 MG/DAY, AT NIGHT (UNKNOWN FOR ACCURATE TIME)
     Route: 048
  7. LANSOPRAZOLE. [Concomitant]
     Active Substance: LANSOPRAZOLE
     Indication: PROPHYLAXIS
     Route: 048
     Dates: start: 20170419, end: 20170426

REACTIONS (5)
  - Epilepsy [Unknown]
  - Device breakage [Not Recovered/Not Resolved]
  - Neuropathy peripheral [Not Recovered/Not Resolved]
  - Catheter site dermatitis [Recovered/Resolved]
  - Device leakage [Unknown]

NARRATIVE: CASE EVENT DATE: 2017
